FAERS Safety Report 16815653 (Version 1)
Quarter: 2019Q3

REPORT INFORMATION
  Report Type: Spontaneous
  Country: US (occurrence: US)
  Receive Date: 20190917
  Receipt Date: 20190917
  Transmission Date: 20191005
  Serious: No
  Sender: FDA-Public Use
  Company Number: US-ALLERGAN-1910937US

PATIENT
  Sex: Female
  Weight: 82 kg

DRUGS (1)
  1. LINZESS [Suspect]
     Active Substance: LINACLOTIDE
     Indication: IRRITABLE BOWEL SYNDROME
     Dosage: 145 ?G, BID (IN THE MORNING AND AT NIGHT)
     Route: 048

REACTIONS (3)
  - Inappropriate schedule of product administration [Unknown]
  - Constipation [Unknown]
  - Product dose omission [Unknown]
